FAERS Safety Report 8815485 (Version 1)
Quarter: 2012Q4

REPORT INFORMATION
  Report Type: 
  Country: US (occurrence: US)
  Receive Date: 20120928
  Receipt Date: 20120928
  Transmission Date: 20130627
  Serious: Yes (Other)
  Sender: FDA-Public Use
  Company Number: US-GLAXOSMITHKLINE-A0995483A

PATIENT
  Sex: Male

DRUGS (1)
  1. WELLBUTRIN [Suspect]
     Indication: MAJOR DEPRESSION
     Route: 065
     Dates: start: 2009

REACTIONS (5)
  - Convulsion [Unknown]
  - Blindness [Unknown]
  - Headache [Unknown]
  - Confusional state [Unknown]
  - Nerve injury [Unknown]
